FAERS Safety Report 17067323 (Version 2)
Quarter: 2019Q4

REPORT INFORMATION
  Report Type: Report from Study
  Country: CO (occurrence: CO)
  Receive Date: 20191122
  Receipt Date: 20191206
  Transmission Date: 20200122
  Serious: Yes (Hospitalization, Other)
  Sender: FDA-Public Use
  Company Number: CO-ASTELLAS-2018US002784

PATIENT
  Age: 40 Year
  Sex: Female
  Weight: 48 kg

DRUGS (8)
  1. TACROLIMUS. [Suspect]
     Active Substance: TACROLIMUS
     Dosage: 2 MG (2 CAPSULES OF 1MG), ONCE DAILY
     Route: 048
     Dates: end: 201811
  2. TACROLIMUS. [Suspect]
     Active Substance: TACROLIMUS
     Dosage: ONE DAY TAKE 3MG AND THE OTHER 4MG, ONCE DAILY
     Route: 048
     Dates: start: 201908, end: 20191101
  3. TRIMETHOPRIM SULFA [Concomitant]
     Active Substance: TRIMETHOPRIM SULFATE
     Indication: PRODUCT USED FOR UNKNOWN INDICATION
     Dosage: 1 DF, EVERY OTHER DAY (MONDAY,WEDNESDAY,FRIDAY)
     Route: 048
  4. TACROLIMUS. [Suspect]
     Active Substance: TACROLIMUS
     Dosage: 3 MG (3 CAPSULES OF 1MG), ONCE DAILY
     Route: 048
     Dates: start: 201811, end: 201908
  5. MYCOPHENOLATE [Concomitant]
     Active Substance: MYCOPHENOLIC ACID
     Indication: RENAL TRANSPLANT
     Route: 048
  6. TACROLIMUS. [Suspect]
     Active Substance: TACROLIMUS
     Route: 048
     Dates: start: 20191102
  7. TACROLIMUS. [Suspect]
     Active Substance: TACROLIMUS
     Indication: RENAL TRANSPLANT
     Route: 048
     Dates: start: 20140331
  8. PREDNISOLONE. [Concomitant]
     Active Substance: PREDNISOLONE
     Indication: RENAL TRANSPLANT
     Route: 048

REACTIONS (3)
  - Systemic lupus erythematosus [Recovered/Resolved]
  - Cystitis [Recovered/Resolved]
  - Kidney transplant rejection [Recovered/Resolved]

NARRATIVE: CASE EVENT DATE: 201711
